FAERS Safety Report 13611319 (Version 1)
Quarter: 2017Q2

REPORT INFORMATION
  Report Type: Spontaneous
  Country: GB (occurrence: GB)
  Receive Date: 20170605
  Receipt Date: 20170605
  Transmission Date: 20170830
  Serious: Yes (Disabling, Other)
  Sender: FDA-Public Use
  Company Number: GB-SA-2016SA156134

PATIENT
  Sex: Male

DRUGS (2)
  1. AUBAGIO [Suspect]
     Active Substance: TERIFLUNOMIDE
     Route: 048
     Dates: start: 2016
  2. ALOE VERA [Interacting]
     Active Substance: ALOE VERA LEAF
     Route: 048
     Dates: start: 201603

REACTIONS (4)
  - Thrombocytopenia [Unknown]
  - Multiple sclerosis relapse [Not Recovered/Not Resolved]
  - Wheelchair user [Unknown]
  - Drug interaction [Unknown]

NARRATIVE: CASE EVENT DATE: 2016
